FAERS Safety Report 9915676 (Version 1)
Quarter: 2014Q1

REPORT INFORMATION
  Report Type: Spontaneous
  Country: US (occurrence: None)
  Receive Date: 20140219
  Receipt Date: 20140219
  Transmission Date: 20141002
  Serious: Yes (Life-Threatening, Hospitalization, Disabling)
  Sender: FDA-Public Use
  Company Number: None

PATIENT
  Age: 82 Year
  Sex: Female

DRUGS (10)
  1. LOSARTAN [Suspect]
     Indication: HYPERTENSION
     Dosage: 1 PILL
     Route: 048
  2. LEVOTHYROXINE 125 MG [Concomitant]
  3. CARVEDILOL 25 MG [Concomitant]
  4. ASPIRIN 81 MG [Concomitant]
  5. NAPROXEN 500 MG [Concomitant]
  6. AMLODIPINE 5 MG [Concomitant]
  7. ROSUVASTATIN 20 MG [Concomitant]
  8. FAMOTIDINE [Suspect]
  9. METFORMIN 500 MG [Concomitant]
  10. LEVETIRACETAM 500 MG [Concomitant]

REACTIONS (2)
  - Dyspnoea [None]
  - Pharyngeal oedema [None]
